FAERS Safety Report 19058850 (Version 1)
Quarter: 2021Q1

REPORT INFORMATION
  Report Type: Spontaneous
  Country: US (occurrence: US)
  Receive Date: 20210325
  Receipt Date: 20210325
  Transmission Date: 20210420
  Serious: Yes (Other)
  Sender: FDA-Public Use
  Company Number: US-SAOL THERAPEUTICS-2021SAO00098

PATIENT
  Sex: Female
  Weight: 38.55 kg

DRUGS (2)
  1. LIORESAL [Suspect]
     Active Substance: BACLOFEN
     Indication: MUSCLE SPASTICITY
     Dosage: 1324 ?G, \DAY; ALSO REPORTED AS 1400 ?G/DAY
     Route: 037
  2. LIORESAL [Suspect]
     Active Substance: BACLOFEN
     Dosage: UNK; MD CONTINUALY WENT UP ON MEDICINE WITH PERIODIC BOLUSES
     Route: 037

REACTIONS (5)
  - Muscle spasticity [Unknown]
  - Device infusion issue [Unknown]
  - Spinal operation [Unknown]
  - Device leakage [Not Recovered/Not Resolved]
  - Device physical property issue [Recovered/Resolved]

NARRATIVE: CASE EVENT DATE: 2019
